FAERS Safety Report 8009090-0 (Version None)
Quarter: 2011Q4

REPORT INFORMATION
  Report Type: 
  Country: None (occurrence: None)
  Receive Date: 20111227
  Receipt Date: 20111219
  Transmission Date: 20120403
  Serious: No
  Sender: FDA-Public Use
  Company Number: US-PFIZER INC-2011308874

PATIENT

DRUGS (1)
  1. VENLAFAXINE HCL [Suspect]
     Dosage: 75 MG, UNK

REACTIONS (2)
  - NAUSEA [None]
  - MALAISE [None]
